FAERS Safety Report 12992074 (Version 1)
Quarter: 2016Q4

REPORT INFORMATION
  Report Type: Spontaneous
  Country: US (occurrence: US)
  Receive Date: 20161201
  Receipt Date: 20161201
  Transmission Date: 20170207
  Serious: No
  Sender: FDA-Public Use
  Company Number: US-GILEAD-2016-0246691

PATIENT
  Sex: Female

DRUGS (2)
  1. CLIMARA [Concomitant]
     Active Substance: ESTRADIOL
     Indication: GENERAL SYMPTOM
  2. EPCLUSA [Suspect]
     Active Substance: SOFOSBUVIR\VELPATASVIR
     Indication: CHRONIC HEPATITIS C
     Dosage: UNK
     Route: 065
     Dates: start: 201603, end: 20160629

REACTIONS (4)
  - Gastrointestinal disorder [Recovered/Resolved]
  - Pelvic pain [Unknown]
  - Nausea [Unknown]
  - Headache [Unknown]
